FAERS Safety Report 8888655 (Version 1)
Quarter: 2012Q4

REPORT INFORMATION
  Report Type: 
  Country: US (occurrence: US)
  Receive Date: 20121106
  Receipt Date: 20121106
  Transmission Date: 20130627
  Serious: Yes (Hospitalization)
  Sender: FDA-Public Use
  Company Number: US-GLAXOSMITHKLINE-A0873754A

PATIENT
  Age: 66 Year
  Sex: Female

DRUGS (22)
  1. ADVAIR [Suspect]
     Indication: CHRONIC OBSTRUCTIVE PULMONARY DISEASE
     Dosage: 1PUFF Twice per day
     Route: 055
  2. ADVAIR [Suspect]
     Indication: CHRONIC OBSTRUCTIVE PULMONARY DISEASE
     Dosage: 1PUFF Per day
     Route: 055
     Dates: start: 2005
  3. MORPHINE [Suspect]
     Indication: PRODUCT USED FOR UNKNOWN INDICATION
     Route: 065
  4. PERCOCET [Suspect]
     Indication: PRODUCT USED FOR UNKNOWN INDICATION
     Route: 065
  5. FLONASE [Suspect]
     Indication: PRODUCT USED FOR UNKNOWN INDICATION
     Route: 065
  6. OXYGEN [Concomitant]
  7. OMEPRAZOLE [Concomitant]
  8. CITALOPRAM [Concomitant]
  9. FUROSEMIDE [Concomitant]
  10. KLOR-CON [Concomitant]
  11. LEVOTHYROXIN [Concomitant]
  12. LITHIUM [Concomitant]
  13. METFORMIN ER [Concomitant]
  14. GABAPENTIN [Concomitant]
  15. GUAIFENESIN [Concomitant]
  16. BABY ASPIRIN [Concomitant]
  17. MULTIVITAMIN [Concomitant]
  18. CALCIUM + VITAMIN D [Concomitant]
  19. IRON [Concomitant]
  20. MACRODANTIN [Concomitant]
  21. LISINOPRIL [Concomitant]
  22. SEROQUEL [Concomitant]

REACTIONS (13)
  - Pneumonia [Not Recovered/Not Resolved]
  - Wrist fracture [Unknown]
  - Pulmonary embolism [Unknown]
  - Diabetes mellitus [Unknown]
  - Chest discomfort [Unknown]
  - Dyspnoea [Unknown]
  - Lung operation [Unknown]
  - Fall [Unknown]
  - Chest pain [Unknown]
  - Thrombosis [Unknown]
  - Wheezing [Unknown]
  - Pain [Unknown]
  - Infection [Unknown]
